FAERS Safety Report 6057640-6 (Version None)
Quarter: 2009Q1

REPORT INFORMATION
  Report Type: 
  Country: None (occurrence: None)
  Receive Date: 20090127
  Receipt Date: 20090127
  Transmission Date: 20090719
  Serious: No
  Sender: FDA-Public Use
  Company Number: None

PATIENT
  Age: 67 Year
  Sex: Female

DRUGS (1)
  1. GADOBENATE DIMEGLUMINE [Suspect]
     Dosage: 10 ML IV
     Route: 042
     Dates: start: 20090118, end: 20090118

REACTIONS (8)
  - DYSPNOEA [None]
  - FEELING ABNORMAL [None]
  - FLUSHING [None]
  - LACRIMATION INCREASED [None]
  - OBSTRUCTIVE AIRWAYS DISORDER [None]
  - RETCHING [None]
  - SPEECH DISORDER [None]
  - THROAT TIGHTNESS [None]
